FAERS Safety Report 8418408-6 (Version None)
Quarter: 2012Q2

REPORT INFORMATION
  Report Type: 
  Country: None (occurrence: None)
  Receive Date: 20120607
  Receipt Date: 20120601
  Transmission Date: 20120825
  Serious: Yes (Hospitalization)
  Sender: FDA-Public Use
  Company Number: JP-PFIZER INC-2012133073

PATIENT
  Age: 78 Year
  Sex: Male
  Weight: 55.2 kg

DRUGS (15)
  1. LANSOPRAZOLE [Concomitant]
  2. URIEF [Concomitant]
  3. PREDNISOLONE [Concomitant]
  4. MAGMITT [Concomitant]
  5. IMIDAFENACIN [Concomitant]
  6. MUCOSTA [Concomitant]
  7. LOXONIN [Concomitant]
  8. LIVOSTIN [Concomitant]
  9. MUCODYNE [Concomitant]
  10. RIMATIL [Concomitant]
  11. PARACETAMOL [Concomitant]
  12. CELEBREX [Concomitant]
  13. VFEND [Suspect]
     Indication: SYSTEMIC MYCOSIS
     Dosage: 300 MG, 2X/DAY
     Route: 048
     Dates: start: 20120509, end: 20120522
  14. ADALAT [Concomitant]
  15. CLARITHROMYCIN [Concomitant]

REACTIONS (1)
  - DRUG-INDUCED LIVER INJURY [None]
